FAERS Safety Report 7456572-6 (Version None)
Quarter: 2011Q2

REPORT INFORMATION
  Report Type: 
  Country: None (occurrence: None)
  Receive Date: 20110503
  Receipt Date: 20110419
  Transmission Date: 20111010
  Serious: No
  Sender: FDA-Public Use
  Company Number: US-B.I. PHARMACEUTICALS,INC./RIDGEFIELD-2011-BP-00088BP

PATIENT
  Sex: Male

DRUGS (20)
  1. NIASPAN [Concomitant]
     Indication: CARDIAC DISORDER
  2. DIOVAN [Concomitant]
     Indication: CARDIAC DISORDER
  3. SPIRIVA [Suspect]
     Indication: CHRONIC OBSTRUCTIVE PULMONARY DISEASE
     Dosage: 18 MCG
     Route: 055
     Dates: start: 20101001, end: 20101101
  4. METOPROLOL SUCCINATE [Concomitant]
     Indication: CARDIAC DISORDER
  5. MEDICATION NOT FURTHER SPECIFIED [Concomitant]
     Indication: MULTIPLE ALLERGIES
  6. JANUVIA [Concomitant]
     Indication: DIABETES MELLITUS
  7. ASPIRIN [Concomitant]
     Indication: PROPHYLAXIS
     Dosage: 81 MG
  8. AZELASTINE SPRAY [Concomitant]
  9. VITAMIN D [Concomitant]
  10. ACETAMINOPHEN [Concomitant]
  11. SPIRIVA [Suspect]
     Dosage: 18 MCG
     Route: 055
     Dates: start: 20101201
  12. LIPITOR [Concomitant]
     Indication: BLOOD CHOLESTEROL INCREASED
  13. METFORMIN HYDROCHLORIDE [Concomitant]
     Indication: DIABETES MELLITUS
  14. TRAMADOL [Concomitant]
     Indication: PAIN
  15. ALPRAZOLAM [Concomitant]
     Indication: ANXIETY
  16. FLUTICASONE PROPIONATE [Concomitant]
  17. ISOSORBIDE DINITRATE [Concomitant]
     Indication: CARDIAC DISORDER
  18. VITAMINS [Concomitant]
     Indication: PROPHYLAXIS
  19. NEXIUM [Concomitant]
     Indication: GASTROOESOPHAGEAL REFLUX DISEASE
  20. PLAVIX [Concomitant]
     Indication: CARDIAC DISORDER

REACTIONS (3)
  - WHEEZING [None]
  - COUGH [None]
  - BRONCHOSPASM [None]
